FAERS Safety Report 16969630 (Version 1)
Quarter: 2019Q4

REPORT INFORMATION
  Report Type: Spontaneous
  Country: US (occurrence: US)
  Receive Date: 20191029
  Receipt Date: 20191029
  Transmission Date: 20200122
  Serious: Yes (Other)
  Sender: FDA-Public Use
  Company Number: US-TORRENT-00009421

PATIENT
  Age: 53 Year
  Sex: Female

DRUGS (1)
  1. SUBVENITE [Suspect]
     Active Substance: LAMOTRIGINE
     Indication: PRODUCT USED FOR UNKNOWN INDICATION
     Dosage: UNKNOWN

REACTIONS (5)
  - Depression [Unknown]
  - Bipolar disorder [Unknown]
  - Anxiety disorder [Unknown]
  - Pruritus [Unknown]
  - Scratch [Unknown]
